FAERS Safety Report 5064467-0 (Version None)
Quarter: 2006Q3

REPORT INFORMATION
  Report Type: 
  Country: None (occurrence: None)
  Receive Date: 20060728
  Receipt Date: 20060721
  Transmission Date: 20061208
  Serious: Yes (Hospitalization, Other)
  Sender: FDA-Public Use
  Company Number: DE-JNJFOC-20060702550

PATIENT
  Sex: Female
  Weight: 84 kg

DRUGS (3)
  1. RISPERDAL [Suspect]
     Indication: DRUG USE FOR UNKNOWN INDICATION
     Dosage: 50X1MG TABLETS
     Route: 048
  2. PLANUM MITE [Suspect]
     Indication: DRUG USE FOR UNKNOWN INDICATION
     Dosage: 10X6MG TABLET
     Route: 048
  3. TRUXAL [Suspect]
     Indication: DRUG USE FOR UNKNOWN INDICATION
     Dosage: 15X70MG TABLET
     Route: 048

REACTIONS (5)
  - GASTROINTESTINAL HYPOMOTILITY [None]
  - MULTIPLE DRUG OVERDOSE [None]
  - SPEECH DISORDER [None]
  - SUICIDE ATTEMPT [None]
  - TACHYCARDIA [None]
